FAERS Safety Report 4436203-X (Version None)
Quarter: 2004Q3

REPORT INFORMATION
  Report Type: 
  Country: None (occurrence: None)
  Receive Date: 20040830
  Receipt Date: 20040518
  Transmission Date: 20050211
  Serious: No
  Sender: FDA-Public Use
  Company Number: US-BRISTOL-MYERS SQUIBB COMPANY-12589875

PATIENT
  Age: 64 Year
  Sex: Female
  Weight: 64 kg

DRUGS (5)
  1. ERBITUX [Suspect]
     Indication: COLON CANCER
     Dosage: LOADING DOSE: 660MG ON 13APR04, 412MG WEEKLY THEREAFTER
     Route: 042
     Dates: start: 20040413, end: 20040413
  2. ATIVAN [Concomitant]
  3. COUMADIN [Concomitant]
  4. PERCOCET [Concomitant]
  5. PLAVIX [Concomitant]

REACTIONS (2)
  - DERMATITIS ACNEIFORM [None]
  - RASH ERYTHEMATOUS [None]
